FAERS Safety Report 24573537 (Version 1)
Quarter: 2024Q4

REPORT INFORMATION
  Report Type: Spontaneous
  Country: PL (occurrence: PL)
  Receive Date: 20241102
  Receipt Date: 20241102
  Transmission Date: 20250115
  Serious: Yes (Other)
  Sender: TEVA
  Company Number: PL-TEVA-VS-3169679

PATIENT
  Age: 2 Day
  Sex: Male

DRUGS (1)
  1. AJOVY [Suspect]
     Active Substance: FREMANEZUMAB-VFRM
     Indication: Migraine
     Route: 065
     Dates: start: 202312, end: 20231208

REACTIONS (4)
  - Urinary tract infection neonatal [Unknown]
  - Foetal exposure during pregnancy [Unknown]
  - Hydrops foetalis [Unknown]
  - Inflammatory marker increased [Unknown]
